FAERS Safety Report 25584972 (Version 1)
Quarter: 2025Q3

REPORT INFORMATION
  Report Type: Spontaneous
  Country: US (occurrence: None)
  Receive Date: 20250718
  Receipt Date: 20250718
  Transmission Date: 20251020
  Serious: Yes (Other)
  Sender: FDA-CTU
  Company Number: None

PATIENT
  Age: 53 Year
  Sex: Male
  Weight: 78.75 kg

DRUGS (1)
  1. AMOXICILLIN [Suspect]
     Active Substance: AMOXICILLIN
     Indication: Infection prophylaxis
     Dosage: OTHER QUANTITY : 1 CAPSULE(S);?FREQUENCY : 3 TIMES A DAY;?
     Route: 048
     Dates: start: 20250716, end: 20250718

REACTIONS (6)
  - Adverse drug reaction [None]
  - Hiccups [None]
  - Pain [None]
  - Gastrooesophageal reflux disease [None]
  - Retching [None]
  - Insomnia [None]

NARRATIVE: CASE EVENT DATE: 20250717
